FAERS Safety Report 5109718-9 (Version None)
Quarter: 2006Q3

REPORT INFORMATION
  Report Type: 
  Country: None (occurrence: None)
  Receive Date: 20060918
  Receipt Date: 20060901
  Transmission Date: 20061208
  Serious: Yes (Hospitalization)
  Sender: FDA-Public Use
  Company Number: 229810

PATIENT
  Age: 75 Year
  Sex: Male

DRUGS (3)
  1. AVASTIN [Suspect]
     Indication: COLORECTAL CANCER
     Dosage: 740 MG, Q3W, INTRAVENOUS
     Route: 042
     Dates: start: 20060713
  2. CAPECITABINE            (CAPECITABINE) [Suspect]
     Indication: COLORECTAL CANCER
     Dosage: 4300 MG, ORAL
     Route: 048
     Dates: start: 20060713
  3. IRINOTECAN HCL [Suspect]
     Indication: COLORECTAL CANCER
     Dosage: 520 MG, Q3W, INTRAVENOUS
     Route: 042
     Dates: start: 20060713

REACTIONS (2)
  - FEBRILE NEUTROPENIA [None]
  - HAEMOGLOBIN DECREASED [None]
